FAERS Safety Report 10168964 (Version 1)
Quarter: 2014Q2

REPORT INFORMATION
  Report Type: Spontaneous
  Country: US (occurrence: None)
  Receive Date: 20140512
  Receipt Date: 20140512
  Transmission Date: 20141212
  Serious: Yes (Hospitalization)
  Sender: FDA-Public Use
  Company Number: None

PATIENT
  Age: 17 Year
  Sex: Female
  Weight: 56 kg

DRUGS (4)
  1. CEFTRIAXONE [Suspect]
     Indication: ENDOCARDITIS
     Route: 042
     Dates: start: 20140303, end: 20140507
  2. ENALAPRIL [Concomitant]
  3. ASA [Concomitant]
  4. FERROUS SULFATE [Concomitant]

REACTIONS (2)
  - Cholelithiasis [None]
  - Pain [None]
